FAERS Safety Report 9552725 (Version 1)
Quarter: 2013Q1

REPORT INFORMATION
  Report Type: Spontaneous
  Country: US (occurrence: None)
  Receive Date: 20130318
  Receipt Date: 20130318
  Transmission Date: 20140127
  Serious: Yes (Hospitalization)
  Sender: FDA-Public Use
  Company Number: 078572

PATIENT
  Age: 21 Year
  Sex: Female
  Weight: 50 kg

DRUGS (4)
  1. ROTIGOTINE [Suspect]
     Indication: HEREDITARY SPASTIC PARAPLEGIA
     Dosage: 8 MG, HALF PATCH DAILY
     Dates: end: 20130211
  2. BACLOFEN [Concomitant]
  3. SINEMET [Concomitant]
  4. AMANTADINE [Concomitant]

REACTIONS (4)
  - Hallucination [None]
  - Lethargy [None]
  - Rash macular [None]
  - Wrong technique in drug usage process [None]
